FAERS Safety Report 5221049-5 (Version None)
Quarter: 2007Q1

REPORT INFORMATION
  Report Type: 
  Country: None (occurrence: None)
  Receive Date: 20070126
  Receipt Date: 20070117
  Transmission Date: 20070707
  Serious: Yes (Hospitalization)
  Sender: FDA-Public Use
  Company Number: US-KINGPHARMUSA00001-K200700035

PATIENT

DRUGS (9)
  1. ALTACE [Interacting]
     Indication: ESSENTIAL HYPERTENSION
     Dosage: 1.25 MG, QD
     Route: 048
     Dates: end: 20061122
  2. NIDREL [Suspect]
     Indication: ESSENTIAL HYPERTENSION
     Dosage: 20 MG, QD
     Route: 048
     Dates: end: 20061122
  3. HYTACAND [Suspect]
     Indication: ESSENTIAL HYPERTENSION
     Dosage: 1 U, QD
     Route: 048
     Dates: end: 20061122
  4. MOPRAL /00661201/ [Concomitant]
     Indication: OESOPHAGITIS
     Dosage: 10 MG, UNK
     Route: 048
     Dates: end: 20061122
  5. VASTEN /00880402/ [Concomitant]
     Indication: HYPERCHOLESTEROLAEMIA
     Dosage: 20 MG, UNK
     Route: 048
     Dates: end: 20061122
  6. PLAVIX [Concomitant]
     Route: 048
  7. VASTAREL [Concomitant]
     Route: 048
     Dates: end: 20061122
  8. FONZYLANE [Concomitant]
     Route: 048
     Dates: end: 20061122
  9. EFFERALGAN /00020001/ [Concomitant]
     Route: 048
     Dates: end: 20061122

REACTIONS (4)
  - ANKLE FRACTURE [None]
  - DRUG INTERACTION [None]
  - FALL [None]
  - ORTHOSTATIC HYPOTENSION [None]
